FAERS Safety Report 5315423-6 (Version None)
Quarter: 2007Q2

REPORT INFORMATION
  Report Type: 
  Country: None (occurrence: None)
  Receive Date: 20070503
  Receipt Date: 20070424
  Transmission Date: 20071010
  Serious: Yes (Hospitalization, Other)
  Sender: FDA-Public Use
  Company Number: PHEH2007US04487

PATIENT
  Age: 49 Year
  Sex: Female

DRUGS (12)
  1. ZELNORM [Suspect]
     Indication: IRRITABLE BOWEL SYNDROME
     Dosage: 6 MG, BID
     Route: 048
     Dates: start: 20051115, end: 20070405
  2. TRAMADOL HCL [Concomitant]
     Indication: FIBROMYALGIA
     Route: 048
  3. GLUCOPHAGE [Concomitant]
     Indication: DIABETES MELLITUS
     Route: 048
  4. CENESTIN [Concomitant]
     Indication: HORMONE REPLACEMENT THERAPY
     Route: 048
  5. SINGULAIR [Concomitant]
     Indication: HYPERSENSITIVITY
     Dosage: UNK, PRN
     Route: 048
     Dates: start: 20040101
  6. ACETYLSALICYLIC ACID SRT [Concomitant]
     Dosage: 81 MG, QD
     Route: 048
     Dates: start: 20060501
  7. VITAMINS NOS [Concomitant]
  8. METOPROLOL SUCCINATE [Concomitant]
     Dosage: 25 MG, QD
     Dates: start: 20060501
  9. LOVASTATIN [Concomitant]
     Dosage: 20 MG, QD
     Dates: start: 20040101
  10. GLIPIZIDE [Concomitant]
     Dosage: 5 MG, BID
     Dates: start: 20040101
  11. AVANDIA [Concomitant]
     Dates: start: 20060101
  12. LISINOPRIL [Concomitant]
     Dates: start: 20051101, end: 20060501

REACTIONS (5)
  - CATHETERISATION CARDIAC ABNORMAL [None]
  - CORONARY ARTERY BYPASS [None]
  - CORONARY ARTERY OCCLUSION [None]
  - DYSPNOEA [None]
  - FATIGUE [None]
